FAERS Safety Report 8289594-6 (Version None)
Quarter: 2012Q2

REPORT INFORMATION
  Report Type: 
  Country: None (occurrence: None)
  Receive Date: 20120417
  Receipt Date: 20120402
  Transmission Date: 20120825
  Serious: Yes (Other)
  Sender: FDA-Public Use
  Company Number: US-ENDO PHARMACEUTICALS INC.-OPCR20120077

PATIENT
  Sex: Male

DRUGS (1)
  1. OPANA ER [Suspect]
     Indication: PAIN
     Route: 048
     Dates: start: 20120326

REACTIONS (7)
  - DRUG INEFFECTIVE [None]
  - FLATULENCE [None]
  - ABDOMINAL DISCOMFORT [None]
  - INTENTIONAL DRUG MISUSE [None]
  - PRODUCT FORMULATION ISSUE [None]
  - ERUCTATION [None]
  - INCORRECT DOSE ADMINISTERED [None]
